FAERS Safety Report 10030907 (Version 1)
Quarter: 2014Q1

REPORT INFORMATION
  Report Type: Spontaneous
  Country: US (occurrence: US)
  Receive Date: 20140323
  Receipt Date: 20140323
  Transmission Date: 20141002
  Serious: No
  Sender: FDA-Public Use
  Company Number: US-ALLERGAN-1315639US

PATIENT
  Sex: Female

DRUGS (1)
  1. LATISSE 0.03% [Suspect]
     Indication: PRODUCT USED FOR UNKNOWN INDICATION
     Dosage: UNK
     Route: 061

REACTIONS (7)
  - Ocular icterus [Unknown]
  - Photophobia [Unknown]
  - Fatigue [Unknown]
  - Abnormal sensation in eye [Unknown]
  - Lacrimation increased [Unknown]
  - Eye pain [Unknown]
  - Ocular hyperaemia [Recovered/Resolved]
